FAERS Safety Report 25802558 (Version 2)
Quarter: 2025Q3

REPORT INFORMATION
  Report Type: Spontaneous
  Country: EU (occurrence: EU)
  Receive Date: 20250915
  Receipt Date: 20250923
  Transmission Date: 20251020
  Serious: Yes (Other)
  Sender: MYLAN
  Company Number: None

PATIENT
  Age: 16 Year
  Sex: Female
  Weight: 64 kg

DRUGS (3)
  1. TRIAMCINOLONE [Suspect]
     Active Substance: TRIAMCINOLONE
     Indication: Eczema
     Dosage: 1 DOSAGE FORM, QOD (3 TIMES PER WEEK)
     Dates: start: 20050301, end: 20240212
  2. MOMETASONE [Suspect]
     Active Substance: MOMETASONE
     Indication: Eczema
  3. HYDROCORTISONE [Suspect]
     Active Substance: HYDROCORTISONE
     Indication: Eczema

REACTIONS (3)
  - Topical steroid withdrawal reaction [Not Recovered/Not Resolved]
  - Eczema [Not Recovered/Not Resolved]
  - Mood swings [Not Recovered/Not Resolved]
